FAERS Safety Report 6344000-3 (Version None)
Quarter: 2009Q3

REPORT INFORMATION
  Report Type: 
  Country: None (occurrence: None)
  Receive Date: 20090904
  Receipt Date: 20090904
  Transmission Date: 20100115
  Serious: Yes (Hospitalization)
  Sender: FDA-Public Use
  Company Number: None

PATIENT
  Age: 35 Year
  Sex: Female
  Weight: 56.6996 kg

DRUGS (1)
  1. LEVAQUIN [Suspect]
     Indication: PNEUMONIA BACTERIAL
     Dosage: 1 TABLET DAILY PO
     Route: 048
     Dates: start: 20090812, end: 20090815

REACTIONS (15)
  - DISSOCIATION [None]
  - DIZZINESS [None]
  - DRY MOUTH [None]
  - EUPHORIC MOOD [None]
  - HEADACHE [None]
  - HYPERHIDROSIS [None]
  - INSOMNIA [None]
  - MUSCLE DISORDER [None]
  - OROPHARYNGEAL PAIN [None]
  - PARAESTHESIA [None]
  - PHOTOPSIA [None]
  - POLLAKIURIA [None]
  - SPEECH DISORDER [None]
  - TACHYPHRENIA [None]
  - THIRST [None]
